FAERS Safety Report 13622178 (Version 1)
Quarter: 2017Q2

REPORT INFORMATION
  Report Type: Spontaneous
  Country: US (occurrence: US)
  Receive Date: 20170607
  Receipt Date: 20170607
  Transmission Date: 20170830
  Serious: No
  Sender: FDA-Public Use
  Company Number: US-ROCHE-1328424

PATIENT
  Age: 63 Year
  Sex: Female

DRUGS (1)
  1. DACLIZUMAB [Suspect]
     Active Substance: DACLIZUMAB
     Indication: SYSTEMIC MASTOCYTOSIS
     Dosage: ON DAYS 1, 4, 8, 15 AND 22
     Route: 042

REACTIONS (1)
  - Therapy non-responder [Unknown]
